FAERS Safety Report 6177089-5 (Version None)
Quarter: 2009Q2

REPORT INFORMATION
  Report Type: 
  Country: None (occurrence: None)
  Receive Date: 20090430
  Receipt Date: 20090430
  Transmission Date: 20091009
  Serious: Yes (Hospitalization)
  Sender: FDA-Public Use
  Company Number: None

PATIENT
  Age: 55 Year
  Sex: Female
  Weight: 152.5 kg

DRUGS (13)
  1. SEPTRA DS [Suspect]
     Indication: CELLULITIS
     Dosage: SEPTRA DS ONE TABLET BID PO X 10 DAYS STARTING 4/4
     Route: 048
  2. WARFARIN SODIUM [Suspect]
     Indication: ATRIAL FIBRILLATION
     Dosage: WARFARIN 10MG DAILY PO CHRONIC
     Route: 048
  3. CARVEDILOL [Concomitant]
  4. DIAZPAM [Concomitant]
  5. FLEXERIL [Concomitant]
  6. LASIX [Concomitant]
  7. LEXAPRO [Concomitant]
  8. NEURONTIN [Concomitant]
  9. NORVASC [Concomitant]
  10. OXYCONTIN [Concomitant]
  11. SYNTHROID [Concomitant]
  12. TOPROL-XL [Concomitant]
  13. ZOCOR [Concomitant]

REACTIONS (8)
  - CELLULITIS [None]
  - EXTRADURAL HAEMATOMA [None]
  - FALL [None]
  - HEADACHE [None]
  - HYPOTENSION [None]
  - INTERNATIONAL NORMALISED RATIO INCREASED [None]
  - RENAL FAILURE [None]
  - TRAUMATIC BRAIN INJURY [None]
